FAERS Safety Report 5125820-X (Version None)
Quarter: 2006Q4

REPORT INFORMATION
  Report Type: 
  Country: None (occurrence: None)
  Receive Date: 20061012
  Receipt Date: 20060920
  Transmission Date: 20070319
  Serious: Yes (Hospitalization, Other)
  Sender: FDA-Public Use
  Company Number: US-ABBOTT-06P-163-0344474-00

PATIENT
  Sex: Male

DRUGS (2)
  1. TRICOR [Suspect]
     Indication: HYPERLIPIDAEMIA
     Route: 048
     Dates: start: 20060619, end: 20060719
  2. TOPERAL [Concomitant]
     Indication: DRUG USE FOR UNKNOWN INDICATION
     Route: 065

REACTIONS (2)
  - HEPATIC FAILURE [None]
  - WEIGHT DECREASED [None]
